FAERS Safety Report 6120394-9 (Version None)
Quarter: 2009Q1

REPORT INFORMATION
  Report Type: 
  Country: None (occurrence: None)
  Receive Date: 20090317
  Receipt Date: 20090305
  Transmission Date: 20090719
  Serious: Yes (Other)
  Sender: FDA-Public Use
  Company Number: PHHY2009BR08172

PATIENT
  Age: 78 Year
  Sex: Male

DRUGS (1)
  1. DIOVAN AMLO FIX [Suspect]

REACTIONS (3)
  - COUGH [None]
  - DYSENTERY [None]
  - RETCHING [None]
